FAERS Safety Report 26048956 (Version 1)
Quarter: 2025Q4

REPORT INFORMATION
  Report Type: Spontaneous
  Country: CA (occurrence: CA)
  Receive Date: 20251115
  Receipt Date: 20251115
  Transmission Date: 20260117
  Serious: Yes (Other)
  Sender: CELLTRION
  Company Number: CA-CELLTRION INC.-2025CA015964

PATIENT

DRUGS (2)
  1. INFLIXIMAB [Suspect]
     Active Substance: INFLIXIMAB
     Indication: Colitis ulcerative
     Dosage: 10 MG/KG,  LOADING DOSE IV REMDANTRY; FOLLOWED BY REMSIMA SC 120MG/2 WEEKS/IV REMDANTRY 0,2 AND 4 WE
     Route: 042
     Dates: start: 20250425, end: 20250606
  2. INFLIXIMAB [Suspect]
     Active Substance: INFLIXIMAB
     Indication: Colitis ulcerative
     Dosage: 120 MG, Q2WEEKS (OLD DOSE); 120MG SC WEEKLY (NEW DOSE)
     Route: 058
     Dates: start: 20250704

REACTIONS (2)
  - Colitis ulcerative [Unknown]
  - Off label use [Unknown]

NARRATIVE: CASE EVENT DATE: 20250425
